FAERS Safety Report 23976619 (Version 1)
Quarter: 2024Q2

REPORT INFORMATION
  Report Type: Spontaneous
  Country: DE (occurrence: DE)
  Receive Date: 20240614
  Receipt Date: 20240614
  Transmission Date: 20240715
  Serious: Yes (Other)
  Sender: FDA-Public Use
  Company Number: DE-EMA-DD-20240319-7482711-155030

PATIENT
  Age: 58 Year
  Sex: Male

DRUGS (4)
  1. OXALIPLATIN [Suspect]
     Active Substance: OXALIPLATIN
     Indication: Adenosquamous cell carcinoma
     Dosage: UNK
     Route: 065
     Dates: start: 201205, end: 201206
  2. LEUCOVORIN CALCIUM [Suspect]
     Active Substance: LEUCOVORIN CALCIUM
     Indication: Adenosquamous cell carcinoma
     Dosage: UNK
     Route: 065
     Dates: start: 201205, end: 201206
  3. DOCETAXEL [Suspect]
     Active Substance: DOCETAXEL\DOCETAXEL ANHYDROUS
     Indication: Adenosquamous cell carcinoma
     Dosage: UNK
     Route: 065
     Dates: start: 201205, end: 201206
  4. FLUOROURACIL [Suspect]
     Active Substance: FLUOROURACIL
     Indication: Adenosquamous cell carcinoma
     Dosage: UNK
     Route: 065
     Dates: start: 201205, end: 201206

REACTIONS (1)
  - Polyneuropathy [Unknown]
